FAERS Safety Report 7304941-7 (Version None)
Quarter: 2011Q1

REPORT INFORMATION
  Report Type: 
  Country: None (occurrence: None)
  Receive Date: 20110222
  Receipt Date: 20110214
  Transmission Date: 20110831
  Serious: Yes (Other)
  Sender: FDA-Public Use
  Company Number: US-ABBOTT-11P-163-0705624-00

PATIENT
  Sex: Female
  Weight: 74.91 kg

DRUGS (17)
  1. ADVAIR [Concomitant]
     Indication: HYPERSENSITIVITY
  2. FOLIC ACID [Concomitant]
     Indication: PRODUCT USED FOR UNKNOWN INDICATION
     Dosage: 2.2MG DAILY
  3. ADVAIR [Concomitant]
     Indication: ASTHMA
     Dosage: 250/50
     Route: 055
  4. ASTEPRO [Concomitant]
     Indication: ASTHMA
     Route: 045
  5. REGLAN [Suspect]
     Indication: GASTROOESOPHAGEAL REFLUX DISEASE
     Dates: start: 20060101, end: 20100401
  6. METHOTREXATE [Concomitant]
     Indication: RHEUMATOID ARTHRITIS
  7. VITAMIN D [Concomitant]
     Indication: PRODUCT USED FOR UNKNOWN INDICATION
  8. VITAMIN E [Concomitant]
     Indication: PRODUCT USED FOR UNKNOWN INDICATION
  9. PLENDIL [Concomitant]
     Indication: HYPERTENSION
  10. GABAPENTIN [Concomitant]
     Indication: PAIN
  11. ASPIRIN [Concomitant]
     Indication: PRODUCT USED FOR UNKNOWN INDICATION
  12. HUMIRA [Suspect]
     Indication: RHEUMATOID ARTHRITIS
     Dates: start: 20050101
  13. SIMVASTATIN [Concomitant]
     Indication: BLOOD CHOLESTEROL INCREASED
  14. AVAPRO [Concomitant]
     Indication: GASTROOESOPHAGEAL REFLUX DISEASE
  15. ASTEPRO [Concomitant]
     Indication: HYPERSENSITIVITY
  16. PROPRANOLOL [Concomitant]
     Indication: HYPERTENSION
  17. METHYLPREDNISOLONE [Concomitant]
     Indication: PRODUCT USED FOR UNKNOWN INDICATION

REACTIONS (13)
  - GASTRIC ULCER [None]
  - DIABETES MELLITUS [None]
  - ASTHMA [None]
  - TARDIVE DYSKINESIA [None]
  - MOVEMENT DISORDER [None]
  - HEADACHE [None]
  - ORAL CANDIDIASIS [None]
  - BACK PAIN [None]
  - NASOPHARYNGITIS [None]
  - JOINT INJURY [None]
  - COUGH [None]
  - HYPERSENSITIVITY [None]
  - OROPHARYNGEAL PAIN [None]
